FAERS Safety Report 6137085-0 (Version None)
Quarter: 2009Q1

REPORT INFORMATION
  Report Type: 
  Country: None (occurrence: None)
  Receive Date: 20090330
  Receipt Date: 20090320
  Transmission Date: 20090719
  Serious: Yes (Hospitalization, Disabling)
  Sender: FDA-Public Use
  Company Number: GB-ROCHE-443041

PATIENT
  Sex: Male

DRUGS (16)
  1. MYCOPHENOLATE MOFETIL [Suspect]
     Indication: DRUG USE FOR UNKNOWN INDICATION
     Route: 065
     Dates: start: 20040801, end: 20060327
  2. NEORECORMON [Suspect]
     Route: 058
     Dates: start: 20060227, end: 20060331
  3. NEORECORMON [Suspect]
     Route: 058
     Dates: start: 20030924, end: 20040423
  4. NEORECORMON [Suspect]
     Route: 058
     Dates: start: 20040423, end: 20040806
  5. NEORECORMON [Suspect]
     Route: 058
     Dates: start: 20040806, end: 20040917
  6. NEORECORMON [Suspect]
     Route: 058
     Dates: start: 20040917, end: 20041229
  7. NEORECORMON [Suspect]
     Route: 058
     Dates: start: 20041229, end: 20050330
  8. NEORECORMON [Suspect]
     Route: 058
     Dates: start: 20050330, end: 20051018
  9. NEORECORMON [Suspect]
     Route: 058
     Dates: start: 20051018, end: 20051129
  10. NEORECORMON [Suspect]
     Route: 058
     Dates: start: 20051129, end: 20060201
  11. NEORECORMON [Suspect]
     Route: 058
     Dates: start: 20060201, end: 20060227
  12. CYCLOSPORINE [Concomitant]
  13. PREDNISOLONE [Concomitant]
  14. ALLOPURINOL [Concomitant]
  15. SIMVASTATIN [Concomitant]
  16. LAMOTRIGINE [Concomitant]
     Indication: EPILEPSY

REACTIONS (1)
  - APLASIA PURE RED CELL [None]
